FAERS Safety Report 8165432-7 (Version None)
Quarter: 2012Q1

REPORT INFORMATION
  Report Type: 
  Country: None (occurrence: None)
  Receive Date: 20120227
  Receipt Date: 20120221
  Transmission Date: 20120608
  Serious: Yes (Life-Threatening, Hospitalization)
  Sender: FDA-Public Use
  Company Number: US-BAYER-2011-072647

PATIENT
  Age: 32 Year
  Sex: Female

DRUGS (10)
  1. DROSPIRENONE AND ETHINYL ESTRADIOL [Suspect]
     Dosage: UNK
     Dates: start: 20080901, end: 20090101
  2. ZYRTEC [Concomitant]
     Dosage: 10 MG, QD
     Route: 048
  3. YASMIN [Suspect]
     Dosage: UNK
     Dates: start: 20020101
  4. HYDROCODONE BITARTRATE [Concomitant]
     Dosage: 7.5 MG, PRN
     Route: 048
  5. NEXIUM [Concomitant]
     Dosage: UNK UNK, PRN
     Route: 048
  6. PROZAC [Concomitant]
     Dosage: 20 MG, QD
     Route: 048
  7. CEFUROXIME [Concomitant]
     Dosage: 500 MG, BID
     Route: 048
  8. YAZ [Suspect]
  9. XANAX [Concomitant]
     Dosage: 0.5 MG, PRN
     Route: 048
  10. YASMIN [Suspect]
     Dosage: UNK
     Dates: start: 20080401

REACTIONS (7)
  - DEEP VEIN THROMBOSIS [None]
  - GENERAL PHYSICAL HEALTH DETERIORATION [None]
  - ANHEDONIA [None]
  - INJURY [None]
  - PULMONARY EMBOLISM [None]
  - PAIN [None]
  - ANXIETY [None]
